FAERS Safety Report 20405144 (Version 16)
Quarter: 2023Q1

REPORT INFORMATION
  Report Type: Report from Study
  Country: UA (occurrence: None)
  Receive Date: 20220131
  Receipt Date: 20230207
  Transmission Date: 20230417
  Serious: Yes (Life-Threatening)
  Sender: FDA-Public Use
  Company Number: UA-Eisai Medical Research-EC-2022-107720

PATIENT
  Age: 65 Year
  Sex: Female
  Weight: 55.8 kg

DRUGS (4)
  1. LENVATINIB [Suspect]
     Active Substance: LENVATINIB
     Indication: Clear cell renal cell carcinoma
     Dosage: STARING DOSE 20 MG, FLUCTUATED DOSAGE
     Route: 048
     Dates: start: 20210830, end: 20211214
  2. PEMBROLIZUMAB [Suspect]
     Active Substance: PEMBROLIZUMAB
     Indication: Clear cell renal cell carcinoma
     Route: 041
     Dates: start: 20210830, end: 20220106
  3. CAPTOPRIL [Concomitant]
     Active Substance: CAPTOPRIL
     Dates: start: 20210921
  4. INDAPAMIDE\PERINDOPRIL ERBUMINE [Concomitant]
     Active Substance: INDAPAMIDE\PERINDOPRIL ERBUMINE
     Dates: start: 20210925

REACTIONS (1)
  - Hepatitis toxic [Recovered/Resolved]

NARRATIVE: CASE EVENT DATE: 20220124
